FAERS Safety Report 6982460-5 (Version None)
Quarter: 2010Q3

REPORT INFORMATION
  Report Type: 
  Country: None (occurrence: None)
  Receive Date: 20100914
  Receipt Date: 20100122
  Transmission Date: 20110219
  Serious: Yes (Other)
  Sender: FDA-Public Use
  Company Number: US-PFIZER INC-2010011061

PATIENT
  Age: 47 Year
  Sex: Female
  Weight: 90.703 kg

DRUGS (7)
  1. LYRICA [Suspect]
     Indication: NEURALGIA
     Dosage: 100 MG, 3X/DAY
     Dates: start: 20090301
  2. BACLOFEN [Concomitant]
     Dosage: UNK
  3. ROBAXIN [Concomitant]
     Dosage: UNK
  4. MOTRIN [Concomitant]
     Dosage: UNK
  5. IRON [Concomitant]
     Dosage: UNK
  6. MULTI-VITAMINS [Concomitant]
     Dosage: UNK
  7. CALCIUM [Concomitant]
     Dosage: UNK

REACTIONS (5)
  - FATIGUE [None]
  - MALNUTRITION [None]
  - MUSCULAR WEAKNESS [None]
  - TREMOR [None]
  - VITAMIN D DEFICIENCY [None]
